FAERS Safety Report 16893115 (Version 2)
Quarter: 2020Q1

REPORT INFORMATION
  Report Type: Spontaneous
  Country: US (occurrence: US)
  Receive Date: 20191008
  Receipt Date: 20200116
  Transmission Date: 20200409
  Serious: Yes (Death)
  Sender: FDA-Public Use
  Company Number: US-ROCHE-2427672

PATIENT
  Age: 84 Year
  Sex: Male

DRUGS (1)
  1. XOLAIR [Suspect]
     Active Substance: OMALIZUMAB
     Indication: ASTHMA
     Dosage: ONGOING: UNKNOWN
     Route: 058
     Dates: start: 20190813

REACTIONS (1)
  - Death [Fatal]

NARRATIVE: CASE EVENT DATE: 20190924
